FAERS Safety Report 16841011 (Version 2)
Quarter: 2019Q4

REPORT INFORMATION
  Report Type: Report from Study
  Country: JP (occurrence: JP)
  Receive Date: 20190923
  Receipt Date: 20191128
  Transmission Date: 20200122
  Serious: Yes (Hospitalization)
  Sender: FDA-Public Use
  Company Number: JP-ACTELION-A-CH2019-195561

PATIENT
  Age: 81 Year
  Sex: Female
  Weight: 52.1 kg

DRUGS (19)
  1. THEOPHYLLINE [Concomitant]
     Active Substance: THEOPHYLLINE ANHYDROUS
  2. OPSUMIT [Suspect]
     Active Substance: MACITENTAN
     Dosage: 5 MG, QD
     Route: 048
     Dates: start: 20161207, end: 20170313
  3. FUROSEMIDE. [Concomitant]
     Active Substance: FUROSEMIDE
  4. SPIRONOLACTONE. [Concomitant]
     Active Substance: SPIRONOLACTONE
  5. COLONEL [Concomitant]
     Active Substance: CALCIUM POLYCARBOPHIL
  6. OPSUMIT [Suspect]
     Active Substance: MACITENTAN
     Indication: PULMONARY ARTERIAL HYPERTENSION
     Dosage: 10 MG, QD
     Route: 048
     Dates: start: 20170314
  7. BETAHISTINE MESILATE [Concomitant]
     Active Substance: BETAHISTINE MESILATE
  8. MONTELUKAST SODIUM. [Concomitant]
     Active Substance: MONTELUKAST SODIUM
  9. OXYGEN. [Concomitant]
     Active Substance: OXYGEN
  10. LANSOPRAZOLE. [Concomitant]
     Active Substance: LANSOPRAZOLE
  11. REVATIO [Concomitant]
     Active Substance: SILDENAFIL CITRATE
  12. MEPTIN AIR [Concomitant]
     Active Substance: PROCATEROL HYDROCHLORIDE
  13. BENIDIPINE HYDROCHLORIDE [Concomitant]
     Active Substance: BENIDIPINE HYDROCHLORIDE
  14. BIOFERMIN [Concomitant]
     Active Substance: DIETARY SUPPLEMENT\PROBIOTICS
  15. BERASUS [Concomitant]
     Active Substance: BERAPROST SODIUM
  16. CILOSTAZOL. [Concomitant]
     Active Substance: CILOSTAZOL
  17. TOCOPHEROL ACETATE [Concomitant]
     Active Substance: .ALPHA.-TOCOPHEROL ACETATE
  18. BEZAFIBRATE [Concomitant]
     Active Substance: BEZAFIBRATE
  19. ONBREZ [Concomitant]
     Active Substance: INDACATEROL

REACTIONS (13)
  - Palpitations [Recovered/Resolved]
  - Left ventricular failure [Recovered/Resolved]
  - Chest discomfort [Recovered/Resolved]
  - Brain natriuretic peptide increased [Recovered/Resolved]
  - Back pain [Recovered/Resolved]
  - Mitral valve incompetence [Recovered/Resolved]
  - Cardiomegaly [Recovered/Resolved]
  - Inflammatory marker increased [Recovered/Resolved]
  - Heart rate irregular [Recovered/Resolved]
  - Atrial enlargement [Recovered/Resolved]
  - Pneumonia [Recovered/Resolved]
  - Atrial fibrillation [Recovered/Resolved]
  - Cardiac murmur [Recovered/Resolved]

NARRATIVE: CASE EVENT DATE: 20181127
